FAERS Safety Report 10793886 (Version 2)
Quarter: 2015Q2

REPORT INFORMATION
  Report Type: Spontaneous
  Country: US (occurrence: US)
  Receive Date: 20150213
  Receipt Date: 20150508
  Transmission Date: 20150821
  Serious: Yes (Hospitalization, Other)
  Sender: FDA-Public Use
  Company Number: US-DSJP-DSU-2015-104240

PATIENT

DRUGS (2)
  1. BENICAR [Suspect]
     Active Substance: OLMESARTAN MEDOXOMIL
     Indication: PRODUCT USED FOR UNKNOWN INDICATION
     Dosage: UNK
     Route: 048
     Dates: end: 2012
  2. TRIBENZOR [Suspect]
     Active Substance: AMLODIPINE BESYLATE\HYDROCHLOROTHIAZIDE\OLMESARTAN MEDOXOMIL
     Indication: PRODUCT USED FOR UNKNOWN INDICATION
     Dosage: 40/10/25 MG
     Route: 048
     Dates: start: 20110606

REACTIONS (8)
  - Syncope [Unknown]
  - Clostridium difficile colitis [Unknown]
  - Acute kidney injury [Unknown]
  - Gastrointestinal disorder [Unknown]
  - Malabsorption [Unknown]
  - Liver function test abnormal [Unknown]
  - Cholelithiasis [Unknown]
  - Hypovolaemic shock [Unknown]

NARRATIVE: CASE EVENT DATE: 201202
